FAERS Safety Report 19678520 (Version 2)
Quarter: 2021Q3

REPORT INFORMATION
  Report Type: Spontaneous
  Country: HR (occurrence: HR)
  Receive Date: 20210810
  Receipt Date: 20210812
  Transmission Date: 20211014
  Serious: Yes (Other)
  Sender: FDA-Public Use
  Company Number: HR-TEVA-2021-HR-1939825

PATIENT
  Age: 16 Year
  Sex: Female
  Weight: 65 kg

DRUGS (2)
  1. IBUPROFEN. [Suspect]
     Active Substance: IBUPROFEN
     Dosage: 30 TBL OF 600 MG IBUPROFEN, UNIT DOSE: 18 GRAM
     Route: 048
     Dates: start: 20210509, end: 20210509
  2. IBUPROFEN. [Suspect]
     Active Substance: IBUPROFEN
     Dosage: 360 TABLETS OF ANVILA 200 MG, UNIT DOSE: 72 GRAM
     Route: 048
     Dates: start: 20210509, end: 20210509

REACTIONS (4)
  - Scleral discolouration [Unknown]
  - Vomiting [Unknown]
  - Suicide attempt [Unknown]
  - Intentional overdose [Unknown]

NARRATIVE: CASE EVENT DATE: 20210510
